FAERS Safety Report 9830488 (Version 2)
Quarter: 2014Q1

REPORT INFORMATION
  Report Type: Spontaneous
  Country: JP (occurrence: JP)
  Receive Date: 20140120
  Receipt Date: 20140204
  Transmission Date: 20141002
  Serious: No
  Sender: FDA-Public Use
  Company Number: JP-GLAXOSMITHKLINE-B0961254A

PATIENT
  Age: 50 Year
  Sex: Male

DRUGS (4)
  1. REQUIP [Suspect]
     Indication: PARKINSONISM
     Dosage: 4MG PER DAY
     Route: 048
     Dates: end: 20140115
  2. AROTINOLOL HYDROCHLORIDE [Concomitant]
     Route: 048
  3. LANDSEN [Concomitant]
     Route: 048
  4. LIORESAL [Concomitant]
     Route: 048

REACTIONS (3)
  - White blood cell count decreased [Unknown]
  - Hypoproteinaemia [Unknown]
  - Nutritional condition abnormal [Unknown]
